FAERS Safety Report 21657451 (Version 1)
Quarter: 2022Q4

REPORT INFORMATION
  Report Type: Spontaneous
  Country: US (occurrence: US)
  Receive Date: 20221129
  Receipt Date: 20221129
  Transmission Date: 20230113
  Serious: No
  Sender: FDA-Public Use
  Company Number: US-TEVA-2022-US-2827123

PATIENT
  Age: 47 Year
  Sex: Male

DRUGS (4)
  1. CISPLATIN [Suspect]
     Active Substance: CISPLATIN
     Indication: Product used for unknown indication
     Route: 065
  2. GABAPENTIN [Suspect]
     Active Substance: GABAPENTIN
     Indication: Sleep disorder
     Dosage: 3600MG EVERYDAY FOR A MONTH
  3. GABAPENTIN [Suspect]
     Active Substance: GABAPENTIN
     Indication: Neuralgia
  4. TRAMADOL [Concomitant]
     Active Substance: TRAMADOL
     Indication: Product used for unknown indication

REACTIONS (10)
  - Nerve injury [Unknown]
  - Motor dysfunction [Unknown]
  - Balance disorder [Unknown]
  - Hypoaesthesia [Unknown]
  - Mobility decreased [Unknown]
  - Insomnia [Unknown]
  - Somnolence [Unknown]
  - Feeling abnormal [Unknown]
  - Memory impairment [Unknown]
  - Product use in unapproved indication [Unknown]
